FAERS Safety Report 12496521 (Version 1)
Quarter: 2016Q2

REPORT INFORMATION
  Report Type: Spontaneous
  Country: US (occurrence: US)
  Receive Date: 20160624
  Receipt Date: 20160624
  Transmission Date: 20160815
  Serious: Yes (Hospitalization, Other)
  Sender: FDA-Public Use
  Company Number: US-GLAXOSMITHKLINE-US2016089387

PATIENT
  Age: 32 Year
  Sex: Female

DRUGS (3)
  1. LAMICTAL [Suspect]
     Active Substance: LAMOTRIGINE
     Indication: AFFECTIVE DISORDER
     Dosage: UNK
     Dates: start: 2014
  2. IBUPROFEN. [Concomitant]
     Active Substance: IBUPROFEN
  3. CLINDAMYCIN [Concomitant]
     Active Substance: CLINDAMYCIN\CLINDAMYCIN PHOSPHATE

REACTIONS (7)
  - Pain in jaw [Unknown]
  - Loss of consciousness [Unknown]
  - Osteomyelitis [Unknown]
  - Migraine [Unknown]
  - Oral infection [Not Recovered/Not Resolved]
  - Tooth extraction [Unknown]
  - Dysarthria [Unknown]

NARRATIVE: CASE EVENT DATE: 201603
